FAERS Safety Report 10017854 (Version 1)
Quarter: 2014Q1

REPORT INFORMATION
  Report Type: Spontaneous
  Country: US (occurrence: US)
  Receive Date: 20140318
  Receipt Date: 20140318
  Transmission Date: 20141002
  Serious: Yes (Other)
  Sender: FDA-Public Use
  Company Number: 2014SP001504

PATIENT
  Age: 46 Year
  Sex: Male
  Weight: 80.92 kg

DRUGS (20)
  1. CYTARABINE [Suspect]
     Indication: ACUTE MYELOID LEUKAEMIA
     Route: 042
  2. DAUNORUBICIN [Suspect]
     Indication: ACUTE MYELOID LEUKAEMIA
     Route: 040
  3. ONDANSETRON [Concomitant]
     Indication: NAUSEA
     Route: 042
     Dates: start: 20131220, end: 20131222
  4. BENZONATATE [Concomitant]
     Indication: COUGH
     Route: 048
     Dates: start: 20131213, end: 20131229
  5. CLOTRIMAZOLE [Concomitant]
     Indication: ORAL CANDIDIASIS
     Route: 048
     Dates: start: 20131213, end: 20131230
  6. ACETAMINOPHEN [Concomitant]
     Indication: PYREXIA
     Route: 048
     Dates: start: 20131213, end: 20131230
  7. ACETAMINOPHEN [Concomitant]
     Indication: PREMEDICATION
     Route: 048
     Dates: start: 20131213, end: 20131230
  8. ACYCLOVIR /00587301/ [Concomitant]
     Indication: PROPHYLAXIS
     Route: 048
     Dates: start: 20131212, end: 20131230
  9. ALLOPURINOL [Concomitant]
     Indication: PRODUCT USED FOR UNKNOWN INDICATION
     Route: 048
     Dates: start: 20131213, end: 20131229
  10. DEXAMETHASONE [Concomitant]
     Indication: PREMEDICATION
     Route: 042
     Dates: start: 20131220, end: 20131227
  11. DIPHENHYDRAMINE [Concomitant]
     Indication: PREMEDICATION
     Route: 048
     Dates: start: 20131214, end: 20131230
  12. ATIVAN [Concomitant]
     Indication: PREMEDICATION
     Route: 042
     Dates: start: 20131213, end: 20131213
  13. MORPHINE [Concomitant]
     Indication: PREMEDICATION
     Route: 042
     Dates: start: 20131213, end: 20131213
  14. MICAFUNGIN [Concomitant]
     Indication: PROPHYLAXIS
     Route: 042
     Dates: start: 20131228, end: 20131230
  15. PROTONIX [Concomitant]
     Indication: PROPHYLAXIS
     Route: 048
     Dates: start: 20131217, end: 20131230
  16. ZOSYN [Concomitant]
     Indication: PRODUCT USED FOR UNKNOWN INDICATION
     Route: 042
     Dates: start: 20131219, end: 20131230
  17. POTASSIUM CHLORIDE [Concomitant]
     Indication: BLOOD POTASSIUM DECREASED
     Route: 042
     Dates: start: 20131230, end: 20131230
  18. VANCOMYCIN [Concomitant]
     Indication: PRODUCT USED FOR UNKNOWN INDICATION
     Route: 042
     Dates: start: 20131215, end: 20131230
  19. CHERATUSSIN [Concomitant]
     Indication: COUGH
     Route: 048
     Dates: start: 20131213, end: 20131213
  20. OXYCODONE [Concomitant]
     Indication: PAIN
     Route: 048
     Dates: start: 20131213, end: 20131213

REACTIONS (1)
  - Myocarditis [Recovered/Resolved]
